FAERS Safety Report 6418001-0 (Version None)
Quarter: 2009Q4

REPORT INFORMATION
  Report Type: 
  Country: None (occurrence: None)
  Receive Date: 20091028
  Receipt Date: 20091014
  Transmission Date: 20100525
  Serious: Yes (Congenital Anomaly, Other)
  Sender: FDA-Public Use
  Company Number: US-JNJFOC-20090905471

PATIENT
  Sex: Male
  Weight: 3.76 kg

DRUGS (7)
  1. REMICADE [Suspect]
     Route: 042
  2. REMICADE [Suspect]
     Indication: DRUG EXPOSURE DURING PREGNANCY
     Route: 042
  3. MERCAPTOPURINE [Concomitant]
     Indication: COLITIS ULCERATIVE
  4. AZULFIDINE [Concomitant]
     Indication: COLITIS ULCERATIVE
  5. ACIPHEX [Concomitant]
     Route: 048
  6. ROWASA [Concomitant]
     Indication: COLITIS ULCERATIVE
  7. FOLIC ACID [Concomitant]

REACTIONS (1)
  - DEAFNESS CONGENITAL [None]
